FAERS Safety Report 4898119-4 (Version None)
Quarter: 2006Q1

REPORT INFORMATION
  Report Type: 
  Country: None (occurrence: None)
  Receive Date: 20060130
  Receipt Date: 20060113
  Transmission Date: 20060701
  Serious: Yes (Hospitalization)
  Sender: FDA-Public Use
  Company Number: 8014311

PATIENT
  Age: 16 Year
  Sex: Male

DRUGS (3)
  1. METHYLPHENIDATE [Suspect]
     Indication: ATTENTION DEFICIT/HYPERACTIVITY DISORDER
     Dosage: 30 MG 2/D PO
     Route: 048
  2. BUPROPION [Suspect]
     Indication: DEPRESSION
     Dosage: 100 MG 2/D PO
     Route: 048
  3. ERYTHROMYCIN [Suspect]
     Indication: ACNE
     Dosage: 999 MG 1/D PO
     Route: 048

REACTIONS (3)
  - ACUTE MYOCARDIAL INFARCTION [None]
  - DRUG INTERACTION [None]
  - VASOSPASM [None]
